FAERS Safety Report 10151365 (Version 1)
Quarter: 2014Q2

REPORT INFORMATION
  Report Type: Spontaneous
  Country: US (occurrence: US)
  Receive Date: 20140502
  Receipt Date: 20140502
  Transmission Date: 20141212
  Serious: No
  Sender: FDA-Public Use
  Company Number: US-ASTRAZENECA-2013SE77659

PATIENT
  Age: 58 Year
  Sex: Female

DRUGS (3)
  1. PRILOSEC OTC [Suspect]
     Indication: ABDOMINAL PAIN UPPER
     Route: 048
     Dates: end: 20130915
  2. LIDODERM [Concomitant]
     Dosage: UNKNOWN
  3. FLONASE [Concomitant]

REACTIONS (2)
  - Disturbance in attention [Recovered/Resolved]
  - Dizziness [Recovered/Resolved]
